FAERS Safety Report 4993235-0 (Version None)
Quarter: 2006Q1

REPORT INFORMATION
  Report Type: 
  Country: None (occurrence: None)
  Receive Date: 20060314
  Receipt Date: 20050329
  Transmission Date: 20060701
  Serious: Yes (Other)
  Sender: FDA-Public Use
  Company Number: 200510759BCC

PATIENT
  Age: 62 Year
  Sex: Female
  Weight: 69.4003 kg

DRUGS (4)
  1. ALEVE [Suspect]
     Indication: BACK PAIN
     Dosage: 660 MG, TOTAL DAILY, ORAL
     Route: 048
     Dates: start: 20050218
  2. ALEVE [Suspect]
     Indication: NEURALGIA
     Dosage: 660 MG, TOTAL DAILY, ORAL
     Route: 048
     Dates: start: 20050218
  3. GLUCOPHAGE [Concomitant]
  4. CYMBALTA [Concomitant]

REACTIONS (3)
  - ABDOMINAL PAIN UPPER [None]
  - DIARRHOEA [None]
  - HAEMATOCHEZIA [None]
